FAERS Safety Report 4521958-6 (Version None)
Quarter: 2004Q4

REPORT INFORMATION
  Report Type: 
  Country: None (occurrence: None)
  Receive Date: 20041206
  Receipt Date: 20041123
  Transmission Date: 20050328
  Serious: Yes (Other)
  Sender: FDA-Public Use
  Company Number: 2004097591

PATIENT
  Age: 54 Year
  Sex: Male

DRUGS (2)
  1. LOPID [Suspect]
     Indication: HYPERLIPIDAEMIA
     Dosage: (1 IN 1 D), ORAL
     Route: 048
  2. ATENOLOL [Concomitant]

REACTIONS (2)
  - LARYNGEAL CANCER [None]
  - SPEECH DISORDER [None]
